FAERS Safety Report 12217525 (Version 1)
Quarter: 2016Q1

REPORT INFORMATION
  Report Type: Spontaneous
  Country: None (occurrence: NZ)
  Receive Date: 20160329
  Receipt Date: 20160329
  Transmission Date: 20160526
  Serious: No
  Sender: FDA-Public Use
  Company Number: NZ-POPULATION COUNCIL, INC.-1049876

PATIENT
  Age: 17 Year
  Sex: Female

DRUGS (1)
  1. JADELLE [Suspect]
     Active Substance: LEVONORGESTREL
     Route: 059
     Dates: start: 20100921

REACTIONS (1)
  - Benign intracranial hypertension [None]

NARRATIVE: CASE EVENT DATE: 20110605
